FAERS Safety Report 8798811 (Version 1)
Quarter: 2012Q4

REPORT INFORMATION
  Report Type: 
  Country: US (occurrence: US)
  Receive Date: 20120920
  Receipt Date: 20120920
  Transmission Date: 20130627
  Serious: Yes (Other)
  Sender: FDA-Public Use
  Company Number: US-GLAXOSMITHKLINE-A0899210A

PATIENT
  Age: 51 Year
  Sex: Male

DRUGS (1)
  1. AVANDIA [Suspect]
     Indication: DIABETES MELLITUS
     Dosage: 8MG Three times per day
     Route: 048
     Dates: start: 20071206, end: 20090101

REACTIONS (5)
  - Cerebrovascular accident [Not Recovered/Not Resolved]
  - Brain stem stroke [Unknown]
  - Deafness unilateral [Unknown]
  - Cardiac failure congestive [Unknown]
  - Arteriosclerosis [Unknown]
